FAERS Safety Report 5040309-4 (Version None)
Quarter: 2006Q2

REPORT INFORMATION
  Report Type: 
  Country: None (occurrence: None)
  Receive Date: 20060630
  Receipt Date: 20060425
  Transmission Date: 20061013
  Serious: No
  Sender: FDA-Public Use
  Company Number: US-BRISTOL-MYERS SQUIBB COMPANY-13355979

PATIENT
  Age: 46 Year
  Sex: Male
  Weight: 108 kg

DRUGS (8)
  1. ORENCIA [Suspect]
     Indication: RHEUMATOID ARTHRITIS
     Route: 042
     Dates: start: 20060403
  2. SULFASALAZINE [Concomitant]
  3. VICODIN [Concomitant]
  4. TYLENOL W/ CODEINE NO. 3 [Concomitant]
  5. NEURONTIN [Concomitant]
  6. LIPITOR [Concomitant]
  7. MOBIC [Concomitant]
  8. CYMBALTA [Concomitant]

REACTIONS (1)
  - HERPES SIMPLEX [None]
